FAERS Safety Report 4915620-5 (Version None)
Quarter: 2006Q1

REPORT INFORMATION
  Report Type: 
  Country: None (occurrence: None)
  Receive Date: 20060217
  Receipt Date: 20060208
  Transmission Date: 20060701
  Serious: Yes (Hospitalization, Other)
  Sender: FDA-Public Use
  Company Number: JP-JNJFOC-20050802346

PATIENT
  Sex: Female
  Weight: 44 kg

DRUGS (19)
  1. REMICADE [Suspect]
     Route: 042
  2. REMICADE [Suspect]
     Route: 042
  3. REMICADE [Suspect]
     Route: 042
  4. REMICADE [Suspect]
     Indication: RHEUMATOID ARTHRITIS
     Route: 042
  5. PREDNISOLONE [Suspect]
     Indication: RHEUMATOID ARTHRITIS
     Route: 048
  6. METHOTREXATE [Suspect]
     Route: 048
  7. METHOTREXATE [Suspect]
     Route: 048
  8. METHOTREXATE [Suspect]
     Indication: RHEUMATOID ARTHRITIS
     Route: 048
  9. ISCOTIN [Concomitant]
     Indication: ANTIBIOTIC PROPHYLAXIS
     Dosage: AT THE PATIENT'S DISCRETION.
     Route: 048
  10. ALTAT [Concomitant]
     Route: 048
  11. GASLON N [Concomitant]
     Route: 048
  12. FOLIAMIN [Concomitant]
     Route: 048
  13. CYANOCOBALAMIN [Concomitant]
     Route: 048
  14. DEPAS [Concomitant]
     Route: 048
  15. TIZANIN [Concomitant]
     Route: 048
  16. ROCALTROL [Concomitant]
     Dosage: DOSE = 0.5RG
     Route: 048
  17. MAGNESIUM OXIDE [Concomitant]
     Route: 048
  18. MOBIC [Concomitant]
     Indication: RHEUMATOID ARTHRITIS
     Route: 048
  19. SODIUM RISEDRONATE HYDRATE [Concomitant]
     Route: 048

REACTIONS (3)
  - DIABETES MELLITUS [None]
  - PNEUMOCYSTIS JIROVECI PNEUMONIA [None]
  - PSEUDOMONAS INFECTION [None]
